FAERS Safety Report 8166756-X (Version None)
Quarter: 2012Q1

REPORT INFORMATION
  Report Type: 
  Country: None (occurrence: None)
  Receive Date: 20120227
  Receipt Date: 20120215
  Transmission Date: 20120608
  Serious: Yes (Death, Hospitalization)
  Sender: FDA-Public Use
  Company Number: CA-MILLENNIUM PHARMACEUTICALS, INC.-2011-06252

PATIENT

DRUGS (3)
  1. MELPHALAN [Concomitant]
     Indication: MULTIPLE MYELOMA
  2. PREDNISONE [Concomitant]
     Indication: MULTIPLE MYELOMA
  3. VELCADE [Suspect]
     Indication: MULTIPLE MYELOMA
     Dosage: UNK
     Route: 065
     Dates: start: 20111124

REACTIONS (1)
  - SEPSIS [None]
